FAERS Safety Report 4660265-8 (Version None)
Quarter: 2005Q2

REPORT INFORMATION
  Report Type: 
  Country: None (occurrence: None)
  Receive Date: 20050512
  Receipt Date: 20050423
  Transmission Date: 20051028
  Serious: Yes (Hospitalization)
  Sender: FDA-Public Use
  Company Number: US-GLAXOSMITHKLINE-A0556817A

PATIENT
  Sex: Female
  Weight: 86.4 kg

DRUGS (1)
  1. ECOTRIN REGULAR STRENGTH TABLETS [Suspect]
     Indication: PROPHYLAXIS
     Dosage: 81MG PER DAY
     Route: 048
     Dates: start: 19980401

REACTIONS (3)
  - ARTERIAL OCCLUSIVE DISEASE [None]
  - CHEST PAIN [None]
  - MYOCARDIAL INFARCTION [None]
